FAERS Safety Report 8393902-5 (Version None)
Quarter: 2012Q2

REPORT INFORMATION
  Report Type: 
  Country: None (occurrence: None)
  Receive Date: 20120516
  Receipt Date: 20120507
  Transmission Date: 20120825
  Serious: Yes (Other)
  Sender: FDA-Public Use
  Company Number: DSA_56191_2012

PATIENT
  Age: 42 Year
  Sex: Male

DRUGS (3)
  1. CONCERTA [Concomitant]
  2. BUPROPION HYDROCHLORIDE [Suspect]
     Indication: DEPRESSION
     Dosage: (150 MG, DAILY)
     Dates: start: 20120301, end: 20120501
  3. BUPROPION HYDROCHLORIDE [Suspect]
     Indication: ATTENTION DEFICIT/HYPERACTIVITY DISORDER
     Dosage: (150 MG, DAILY)
     Dates: start: 20120301, end: 20120501

REACTIONS (2)
  - CRYING [None]
  - SUICIDAL IDEATION [None]
